FAERS Safety Report 19662469 (Version 2)
Quarter: 2025Q3

REPORT INFORMATION
  Report Type: Spontaneous
  Country: EU (occurrence: EU)
  Receive Date: 20210805
  Receipt Date: 20250929
  Transmission Date: 20251021
  Serious: Yes (Other)
  Sender: UCB
  Company Number: EU-UCBSA-2021036018

PATIENT
  Age: 33 Year
  Sex: Female

DRUGS (6)
  1. CERTOLIZUMAB PEGOL [Suspect]
     Active Substance: CERTOLIZUMAB PEGOL
     Indication: Rheumatoid arthritis
     Dosage: 200 MILLIGRAM, EV 15 DAYS
  2. CERTOLIZUMAB PEGOL [Suspect]
     Active Substance: CERTOLIZUMAB PEGOL
  3. CORTISONE [Concomitant]
     Active Substance: CORTISONE
     Indication: Rheumatoid arthritis
  4. PREDNISONE [Concomitant]
     Active Substance: PREDNISONE
     Indication: Rheumatoid arthritis
  5. PREDNISONE [Concomitant]
     Active Substance: PREDNISONE
  6. TRIAMCINOLONE ACETONIDE [Concomitant]
     Active Substance: TRIAMCINOLONE ACETONIDE
     Indication: Rheumatoid arthritis
     Route: 014

REACTIONS (8)
  - Rheumatoid arthritis [Unknown]
  - Pre-eclampsia [Unknown]
  - Induced labour [Unknown]
  - Premature delivery [Unknown]
  - Maternal exposure during pregnancy [Unknown]
  - Twin pregnancy [Unknown]
  - Off label use [Unknown]
  - Drug ineffective [Unknown]
